FAERS Safety Report 12553235 (Version 3)
Quarter: 2016Q4

REPORT INFORMATION
  Report Type: Report from Study
  Country: CO (occurrence: CO)
  Receive Date: 20160713
  Receipt Date: 20161004
  Transmission Date: 20170207
  Serious: No
  Sender: FDA-Public Use
  Company Number: PHHY2016CO096095

PATIENT
  Age: 59 Year
  Sex: Male
  Weight: 71 kg

DRUGS (1)
  1. TASIGNA [Suspect]
     Active Substance: NILOTINIB
     Indication: CHRONIC MYELOID LEUKAEMIA
     Dosage: 2 DF, Q12H
     Route: 048
     Dates: start: 20110815

REACTIONS (14)
  - Influenza [Unknown]
  - Weight decreased [Unknown]
  - Tongue blistering [Not Recovered/Not Resolved]
  - Abdominal pain [Unknown]
  - Arthralgia [Unknown]
  - Eating disorder [Unknown]
  - Hypersensitivity [Unknown]
  - Pain in extremity [Unknown]
  - Oropharyngeal pain [Unknown]
  - Stomatitis [Unknown]
  - Pyrexia [Unknown]
  - Lip blister [Not Recovered/Not Resolved]
  - Pruritus generalised [Unknown]
  - Gastritis [Unknown]

NARRATIVE: CASE EVENT DATE: 20160608
